FAERS Safety Report 4683258-3 (Version None)
Quarter: 2005Q2

REPORT INFORMATION
  Report Type: 
  Country: None (occurrence: None)
  Receive Date: 20050602
  Receipt Date: 20050202
  Transmission Date: 20051028
  Serious: No
  Sender: FDA-Public Use
  Company Number: USA050289714

PATIENT
  Age: 80 Year
  Sex: Female

DRUGS (5)
  1. CYMBALTA [Suspect]
     Indication: DEPRESSION
     Dosage: 30 MG DAY
     Dates: start: 20050126
  2. LANTUS [Concomitant]
  3. ALTACE (RAMIPRIL DURA) [Concomitant]
  4. ZOCOR (SIMVASTATIN RATIOPHARM) [Concomitant]
  5. BENZYLHYDROCHLOROTHIAZIDE [Concomitant]

REACTIONS (4)
  - BEDRIDDEN [None]
  - DIZZINESS [None]
  - NAUSEA [None]
  - STOMACH DISCOMFORT [None]
